FAERS Safety Report 4672361-X (Version None)
Quarter: 2005Q2

REPORT INFORMATION
  Report Type: 
  Country: None (occurrence: None)
  Receive Date: 20050520
  Receipt Date: 20050509
  Transmission Date: 20051028
  Serious: Yes (Hospitalization, Other)
  Sender: FDA-Public Use
  Company Number: 2005-01596

PATIENT
  Age: 45 Year
  Sex: Female

DRUGS (6)
  1. VERAPAMIL [Suspect]
     Indication: INTENTIONAL MISUSE
     Dosage: 7.2 GRAM SINGLE ORAL
     Route: 048
     Dates: start: 20040101, end: 20040101
  2. DIAZEPAM [Suspect]
     Indication: INTENTIONAL MISUSE
     Dosage: 2 G SINGLE ORAL
     Route: 048
     Dates: start: 20040101
  3. CLONAZEPAM [Suspect]
     Indication: INTENTIONAL MISUSE
     Dosage: 100 MG SINGLE ORAL
     Route: 048
     Dates: start: 20040101
  4. TEMAZEPAM [Suspect]
     Indication: INTENTIONAL MISUSE
     Dosage: 200 MG SINGLE ORAL
     Route: 048
     Dates: start: 20040101
  5. DOXEPIN HCL [Suspect]
     Indication: INTENTIONAL MISUSE
     Dosage: 1.6 SINGLE ORAL
     Route: 048
     Dates: start: 20040101
  6. QUETIAPINE FUMARATE [Suspect]
     Indication: INTENTIONAL MISUSE
     Dosage: 10 G SINGLE ORAL
     Route: 048
     Dates: start: 20040101

REACTIONS (4)
  - CARDIAC ARREST [None]
  - METABOLIC ACIDOSIS [None]
  - MULTIPLE DRUG OVERDOSE [None]
  - SHOCK [None]
